FAERS Safety Report 8301464-3 (Version None)
Quarter: 2012Q2

REPORT INFORMATION
  Report Type: 
  Country: None (occurrence: None)
  Receive Date: 20120420
  Receipt Date: 20120405
  Transmission Date: 20120825
  Serious: Yes (Hospitalization)
  Sender: FDA-Public Use
  Company Number: JP-ROCHE-1030780

PATIENT
  Sex: Male

DRUGS (13)
  1. VINCRISTINE SULFATE [Concomitant]
     Indication: DIFFUSE LARGE B-CELL LYMPHOMA
  2. RITUXIMAB [Suspect]
     Indication: DIFFUSE LARGE B-CELL LYMPHOMA
     Route: 042
     Dates: start: 20080710, end: 20081209
  3. PREDNISOLONE [Concomitant]
     Indication: DIFFUSE LARGE B-CELL LYMPHOMA
  4. POLAPREZINC [Concomitant]
  5. FLUCONAZOLE [Concomitant]
  6. CYCLOPHOSPHAMIDE [Concomitant]
     Indication: DIFFUSE LARGE B-CELL LYMPHOMA
     Dates: start: 20080711, end: 20081210
  7. SULFAMETHOXAZOLE AND TRIMETHOPRIM [Concomitant]
  8. MECOBALAMIN [Concomitant]
  9. AMPHOTERICIN B [Concomitant]
  10. ASPIRIN [Concomitant]
  11. DOXORUBICIN HCL [Concomitant]
     Indication: DIFFUSE LARGE B-CELL LYMPHOMA
  12. LANSOPRAZOLE [Concomitant]
  13. TICLOPIDINE HCL [Concomitant]

REACTIONS (1)
  - GASTRIC CANCER [None]
